FAERS Safety Report 5352417-9 (Version None)
Quarter: 2007Q2

REPORT INFORMATION
  Report Type: 
  Country: None (occurrence: None)
  Receive Date: 20070611
  Receipt Date: 20070529
  Transmission Date: 20071010
  Serious: Yes (Hospitalization)
  Sender: FDA-Public Use
  Company Number: PL-AMGEN-US228448

PATIENT
  Sex: Female

DRUGS (1)
  1. ENBREL [Suspect]
     Indication: RHEUMATOID ARTHRITIS
     Route: 058
     Dates: start: 20061005, end: 20070502

REACTIONS (3)
  - EXTRAVASATION [None]
  - MENORRHAGIA [None]
  - THROMBOCYTOPENIA [None]
